FAERS Safety Report 19301121 (Version 1)
Quarter: 2021Q2

REPORT INFORMATION
  Report Type: Spontaneous
  Country: US (occurrence: US)
  Receive Date: 20210525
  Receipt Date: 20210525
  Transmission Date: 20210717
  Serious: Yes (Other)
  Sender: FDA-Public Use
  Company Number: US-AMGEN-USASP2021078300

PATIENT
  Age: 26 Year
  Sex: Male

DRUGS (1)
  1. BLINCYTO [Suspect]
     Active Substance: BLINATUMOMAB
     Indication: ACUTE LYMPHOCYTIC LEUKAEMIA RECURRENT
     Dosage: UNK
     Route: 065
     Dates: start: 202104

REACTIONS (4)
  - Confusional state [Unknown]
  - Disorientation [Unknown]
  - Headache [Unknown]
  - Central nervous system leukaemia [Unknown]

NARRATIVE: CASE EVENT DATE: 2021
